FAERS Safety Report 25129767 (Version 1)
Quarter: 2025Q1

REPORT INFORMATION
  Report Type: Spontaneous
  Country: US (occurrence: None)
  Receive Date: 20250327
  Receipt Date: 20250327
  Transmission Date: 20250409
  Serious: Yes (Other)
  Sender: FDA-CTU
  Company Number: None

PATIENT
  Age: 34 Year
  Sex: Female
  Weight: 146.25 kg

DRUGS (7)
  1. IBUPROFEN [Suspect]
     Active Substance: IBUPROFEN
     Indication: Dysmenorrhoea
     Route: 048
     Dates: start: 20240930, end: 20240930
  2. HYDROCHLOROTHIAZIDE\LOSARTAN [Concomitant]
     Active Substance: HYDROCHLOROTHIAZIDE\LOSARTAN
  3. ATENOLOL [Concomitant]
     Active Substance: ATENOLOL
  4. VITAMIN D3 [Concomitant]
     Active Substance: CHOLECALCIFEROL
  5. TYLENOL [Concomitant]
     Active Substance: ACETAMINOPHEN
  6. ZANTAC [Concomitant]
     Active Substance: RANITIDINE HYDROCHLORIDE
  7. women^s probiotic suppositories [Concomitant]

REACTIONS (2)
  - Drug hypersensitivity [None]
  - Angioedema [None]

NARRATIVE: CASE EVENT DATE: 20240930
